FAERS Safety Report 6363915-3 (Version None)
Quarter: 2009Q3

REPORT INFORMATION
  Report Type: 
  Country: None (occurrence: None)
  Receive Date: 20090919
  Receipt Date: 20090709
  Transmission Date: 20100115
  Serious: No
  Sender: FDA-Public Use
  Company Number: US-ABBOTT-09P-163-0584841-00

PATIENT
  Sex: Female

DRUGS (4)
  1. HUMIRA [Suspect]
     Indication: DRUG USE FOR UNKNOWN INDICATION
     Dates: start: 20090526
  2. PENTASA [Concomitant]
     Indication: DRUG USE FOR UNKNOWN INDICATION
  3. FLAGYL [Concomitant]
     Indication: DRUG USE FOR UNKNOWN INDICATION
  4. AMOXICILLIN [Concomitant]
     Indication: DRUG USE FOR UNKNOWN INDICATION

REACTIONS (3)
  - EYE PRURITUS [None]
  - FURUNCLE [None]
  - RASH PAPULAR [None]
